FAERS Safety Report 15010449 (Version 1)
Quarter: 2018Q2

REPORT INFORMATION
  Report Type: Spontaneous
  Country: US (occurrence: US)
  Receive Date: 20180614
  Receipt Date: 20180614
  Transmission Date: 20180711
  Serious: No
  Sender: FDA-Public Use
  Company Number: US-AUROBINDO-AUR-APU-2017-40246

PATIENT
  Sex: Male

DRUGS (1)
  1. CIPROFLOXACIN TABLETS USP 500 MG [Suspect]
     Active Substance: CIPROFLOXACIN
     Indication: INFECTION
     Dosage: 500 MG, TWO TIMES A DAY
     Route: 065
     Dates: start: 20170414

REACTIONS (3)
  - Peripheral swelling [Unknown]
  - Tendon rupture [Unknown]
  - Dizziness [Unknown]
